FAERS Safety Report 19954196 (Version 7)
Quarter: 2022Q2

REPORT INFORMATION
  Report Type: Report from Study
  Country: CO (occurrence: CO)
  Receive Date: 20211014
  Receipt Date: 20220517
  Transmission Date: 20220721
  Serious: Yes (Hospitalization, Other)
  Sender: FDA-Public Use
  Company Number: CO-002147023-NVSC2021CO228383

PATIENT

DRUGS (8)
  1. RUXOLITINIB [Suspect]
     Active Substance: RUXOLITINIB
     Indication: Polycythaemia vera
     Dosage: 15 MG, Q12H
     Route: 048
     Dates: start: 20210718
  2. RUXOLITINIB [Suspect]
     Active Substance: RUXOLITINIB
     Dosage: 15 MG, Q12H
     Route: 048
     Dates: start: 202107, end: 202108
  3. RUXOLITINIB [Suspect]
     Active Substance: RUXOLITINIB
     Dosage: 15 MG, QD (TAKING 1 TABLET OF 15 MG A DAY INSTEAD OF 1 EVERY 12 HOURS)
     Route: 048
  4. LOSARTAN [Suspect]
     Active Substance: LOSARTAN
     Indication: Hypertension
     Dosage: 50 MG, Q12H
     Route: 048
     Dates: start: 2016
  5. METOPROLOL [Suspect]
     Active Substance: METOPROLOL
     Indication: Hypertension
     Dosage: 50 MG, QD
     Route: 048
     Dates: start: 2019
  6. ISONIAZID [Concomitant]
     Active Substance: ISONIAZID
     Indication: Lymph node tuberculosis
     Dosage: UNK
     Route: 065
     Dates: start: 202103, end: 20211002
  7. HYDROCHLOROTHIAZIDE [Concomitant]
     Active Substance: HYDROCHLOROTHIAZIDE
     Indication: Diuretic therapy
     Dosage: 25 MG, QD
     Route: 048
     Dates: start: 2019
  8. ASPIRIN [Concomitant]
     Active Substance: ASPIRIN
     Indication: Blood disorder
     Dosage: 100 MG, QD
     Route: 048
     Dates: start: 2019

REACTIONS (18)
  - Pruritus [Unknown]
  - COVID-19 [Unknown]
  - Diarrhoea [Recovering/Resolving]
  - Abdominal discomfort [Not Recovered/Not Resolved]
  - Laboratory test abnormal [Unknown]
  - Abdominal distension [Unknown]
  - Malaise [Unknown]
  - Headache [Unknown]
  - Helicobacter infection [Unknown]
  - Product availability issue [Unknown]
  - Inappropriate schedule of product administration [Unknown]
  - Feeling of despair [Unknown]
  - Paraesthesia [Unknown]
  - Dyspnoea [Unknown]
  - Gastritis [Unknown]
  - Fatigue [Unknown]
  - Feeling abnormal [Unknown]
  - Urticaria [Unknown]

NARRATIVE: CASE EVENT DATE: 20200701
